FAERS Safety Report 8837074 (Version 1)
Quarter: 2012Q4

REPORT INFORMATION
  Report Type: Spontaneous
  Country: US (occurrence: None)
  Receive Date: 20121011
  Receipt Date: 20121011
  Transmission Date: 20130627
  Serious: Yes (Life-Threatening, Hospitalization)
  Sender: FDA-Public Use
  Company Number: None

PATIENT
  Weight: 56.7 kg

DRUGS (1)
  1. MIRENA IUD [Suspect]

REACTIONS (1)
  - Device dislocation [None]
